FAERS Safety Report 5352342-3 (Version None)
Quarter: 2007Q2

REPORT INFORMATION
  Report Type: 
  Country: None (occurrence: None)
  Receive Date: 20070607
  Receipt Date: 20070607
  Transmission Date: 20071010
  Serious: Yes (Other)
  Sender: FDA-Public Use
  Company Number: None

PATIENT
  Sex: Female

DRUGS (9)
  1. REVLIMID [Suspect]
     Indication: MYELODYSPLASTIC SYNDROME
     Dosage: 5 MG DAILY PO
     Route: 048
     Dates: start: 20070314, end: 20070521
  2. METHADONE HCL [Concomitant]
  3. VICODIN [Concomitant]
  4. PILOCARPINE [Concomitant]
  5. LACTULOSE [Concomitant]
  6. NORTRIPTYLINE HCL [Concomitant]
  7. FOSAMAX PLUS D [Concomitant]
  8. FLUOXETINE [Concomitant]
  9. PRINZIDE [Concomitant]

REACTIONS (3)
  - HAEMOGLOBIN DECREASED [None]
  - PLATELET COUNT DECREASED [None]
  - WHITE BLOOD CELL COUNT DECREASED [None]
